FAERS Safety Report 4740665-8 (Version None)
Quarter: 2005Q3

REPORT INFORMATION
  Report Type: 
  Country: None (occurrence: None)
  Receive Date: 20050810
  Receipt Date: 20050419
  Transmission Date: 20060218
  Serious: Yes (Hospitalization)
  Sender: FDA-Public Use
  Company Number: US-MERCK-0504USA03704

PATIENT
  Age: 59 Year
  Sex: Male
  Weight: 90 kg

DRUGS (8)
  1. VIOXX [Suspect]
     Indication: SHOULDER PAIN
     Route: 048
     Dates: start: 20000330, end: 20020925
  2. VIOXX [Suspect]
     Indication: BUTTOCK PAIN
     Route: 048
     Dates: start: 20000330, end: 20020925
  3. MONOPRIL [Concomitant]
     Route: 065
  4. NORVASC [Concomitant]
     Route: 065
  5. PLENDIL [Concomitant]
     Route: 065
  6. FUROSEMIDE [Concomitant]
     Route: 065
  7. HYDROCHLOROTHIAZIDE [Concomitant]
     Route: 065
  8. ZOCOR [Concomitant]
     Route: 065

REACTIONS (27)
  - ANAEMIA [None]
  - BACK DISORDER [None]
  - BACK PAIN [None]
  - BENIGN NEOPLASM OF PROSTATE [None]
  - BLOOD CHOLESTEROL INCREASED [None]
  - BLOOD CREATINE PHOSPHOKINASE INCREASED [None]
  - BLOOD LACTATE DEHYDROGENASE INCREASED [None]
  - BLOOD TRIGLYCERIDES INCREASED [None]
  - BRONCHITIS [None]
  - BUTTOCK PAIN [None]
  - CORONARY ARTERY DISEASE [None]
  - EAR DISORDER [None]
  - ERECTILE DYSFUNCTION [None]
  - EXOSTOSIS [None]
  - HIGH DENSITY LIPOPROTEIN DECREASED [None]
  - HYPERKERATOSIS PALMARIS AND PLANTARIS [None]
  - HYPERTENSION [None]
  - MIXED CONNECTIVE TISSUE DISEASE [None]
  - MYOCARDIAL INFARCTION [None]
  - OEDEMA PERIPHERAL [None]
  - OSTEOARTHRITIS [None]
  - PERIPHERAL VASCULAR DISORDER [None]
  - PEYRONIE'S DISEASE [None]
  - RENAL FAILURE [None]
  - SKIN ULCER [None]
  - TOE DEFORMITY [None]
  - VIRAL INFECTION [None]
